FAERS Safety Report 9778196 (Version 1)
Quarter: 2013Q4

REPORT INFORMATION
  Report Type: Spontaneous
  Country: ZA (occurrence: ZA)
  Receive Date: 20131223
  Receipt Date: 20131223
  Transmission Date: 20140711
  Serious: Yes (Hospitalization, Other)
  Sender: FDA-Public Use
  Company Number: ZA-JNJFOC-20131211463

PATIENT
  Age: 68 Year
  Sex: Female
  Weight: 60 kg

DRUGS (14)
  1. XARELTO [Suspect]
     Indication: HIP ARTHROPLASTY
     Route: 048
     Dates: start: 20131204, end: 20131210
  2. XARELTO [Suspect]
     Indication: THROMBOSIS PROPHYLAXIS
     Route: 048
     Dates: start: 20131204, end: 20131210
  3. VITAMIN D [Concomitant]
     Route: 065
  4. ATENOLOL [Concomitant]
     Route: 065
  5. FLUVASTATIN SODIUM [Concomitant]
     Route: 065
  6. ZITHROMAX [Concomitant]
     Route: 065
  7. FLUTICASONE [Concomitant]
     Dosage: 50/500BD
     Route: 065
  8. SPIRACTIN [Concomitant]
     Route: 065
  9. PREDNISONE [Concomitant]
     Route: 065
  10. PANTOLOC [Concomitant]
     Route: 065
  11. OXYNORM [Concomitant]
     Route: 065
  12. ATROVENT [Concomitant]
     Route: 065
  13. LYRICA [Concomitant]
     Route: 065
  14. KYTRIL [Concomitant]
     Route: 065

REACTIONS (3)
  - Muscle haemorrhage [Unknown]
  - Abdominal pain [Unknown]
  - Nausea [Unknown]
